FAERS Safety Report 12189852 (Version 2)
Quarter: 2016Q2

REPORT INFORMATION
  Report Type: Spontaneous
  Country: US (occurrence: US)
  Receive Date: 20160318
  Receipt Date: 20160615
  Transmission Date: 20160815
  Serious: No
  Sender: FDA-Public Use
  Company Number: US-ACCORD-036151

PATIENT
  Age: 83 Year
  Sex: Female

DRUGS (3)
  1. LEVOTHYROXINE/LEVOTHYROXINE SODIUM [Concomitant]
     Indication: BLOOD THYROID STIMULATING HORMONE INCREASED
  2. AMITRIPTYLINE ACCORD [Suspect]
     Active Substance: AMITRIPTYLINE
     Indication: CHRONIC FATIGUE SYNDROME
     Dosage: STRENGTH: 25 MG
     Route: 048
     Dates: start: 201507
  3. TEMAZEPAM. [Concomitant]
     Active Substance: TEMAZEPAM
     Indication: SLEEP DISORDER

REACTIONS (5)
  - Pharyngeal hypoaesthesia [Not Recovered/Not Resolved]
  - Product substitution issue [Unknown]
  - Off label use [Unknown]
  - Burning sensation [Recovered/Resolved]
  - Dysphagia [Recovered/Resolved]

NARRATIVE: CASE EVENT DATE: 20151205
